FAERS Safety Report 9106884 (Version 2)
Quarter: 2013Q1

REPORT INFORMATION
  Report Type: Spontaneous
  Country: IT (occurrence: IT)
  Receive Date: 20130221
  Receipt Date: 20130312
  Transmission Date: 20140127
  Serious: Yes (Other)
  Sender: FDA-Public Use
  Company Number: IT-BRISTOL-MYERS SQUIBB COMPANY-17395278

PATIENT
  Age: 91 Year
  Sex: Female

DRUGS (5)
  1. COUMADIN TABS 5 MG [Suspect]
     Indication: ATRIAL FIBRILLATION
     Dosage: 1DF=1 UNIT?INTERRUPTED ON 18JAN2013
     Route: 048
     Dates: start: 20120101
  2. NITROGLYCERINE [Concomitant]
     Dosage: PATCHES
     Route: 062
  3. ESOPRAL [Concomitant]
     Dosage: TABS
     Route: 048
  4. CONGESCOR [Concomitant]
     Dosage: TABS
     Route: 048
  5. EUDIGOX [Concomitant]
     Dosage: TABS
     Route: 048

REACTIONS (2)
  - Hypertensive crisis [Unknown]
  - Epistaxis [Recovering/Resolving]
